FAERS Safety Report 8999451 (Version 1)
Quarter: 2013Q1

REPORT INFORMATION
  Report Type: Spontaneous
  Country: GB (occurrence: GB)
  Receive Date: 20130103
  Receipt Date: 20130103
  Transmission Date: 20140127
  Serious: Yes (Other)
  Sender: FDA-Public Use
  Company Number: GB-ELI_LILLY_AND_COMPANY-GB201212007760

PATIENT
  Age: 48 Year
  Sex: Male
  Weight: 122.5 kg

DRUGS (11)
  1. BYDUREON [Suspect]
     Indication: DIABETES MELLITUS
     Dosage: 2 MG, WEEKLY (1/W)
     Route: 058
     Dates: start: 20120319, end: 20121210
  2. AMITRIPTYLINE [Concomitant]
  3. ASPIRIN [Concomitant]
  4. CANDESARTAN [Concomitant]
  5. DOXAZOSIN [Concomitant]
  6. METFORMIN [Concomitant]
  7. NOVOMIX [Concomitant]
  8. OMEPRAZOLE [Concomitant]
  9. PRIADEL [Concomitant]
  10. PROPRANOLOL [Concomitant]
  11. SIMVASTATIN [Concomitant]

REACTIONS (7)
  - Emotional distress [Unknown]
  - Anxiety [Unknown]
  - Fear [Unknown]
  - Injection site erosion [Recovering/Resolving]
  - Injection site haemorrhage [Recovering/Resolving]
  - Injection site extravasation [Recovering/Resolving]
  - Skin mass [Recovering/Resolving]
